FAERS Safety Report 13815762 (Version 1)
Quarter: 2017Q3

REPORT INFORMATION
  Report Type: Other
  Country: GB (occurrence: GB)
  Receive Date: 20170731
  Receipt Date: 20170731
  Transmission Date: 20171127
  Serious: Yes (Hospitalization, Disabling, Other)
  Sender: FDA-Public Use
  Company Number: GB-GLENMARK PHARMACEUTICALS-2017GMK028291

PATIENT

DRUGS (4)
  1. PREDNISOLONE. [Concomitant]
     Active Substance: PREDNISOLONE
     Indication: PRODUCT USED FOR UNKNOWN INDICATION
     Dosage: 5 MG 8 TIMES A DAY
     Route: 065
  2. GABAPENTIN. [Suspect]
     Active Substance: GABAPENTIN
     Dosage: 600 MG, OD
     Route: 048
  3. PROPRANOLOL [Concomitant]
     Active Substance: PROPRANOLOL HYDROCHLORIDE
     Indication: PRODUCT USED FOR UNKNOWN INDICATION
     Dosage: 40 MG, QID
     Route: 065
  4. GABAPENTIN. [Suspect]
     Active Substance: GABAPENTIN
     Indication: SHOULDER OPERATION
     Dosage: UNK
     Route: 048
     Dates: start: 2005

REACTIONS (22)
  - Anosmia [Not Recovered/Not Resolved]
  - Enuresis [Unknown]
  - Ear congestion [Unknown]
  - Skin discolouration [Unknown]
  - Disorientation [Not Recovered/Not Resolved]
  - Drug dependence [Unknown]
  - Lymphadenopathy [Unknown]
  - Amnesia [Not Recovered/Not Resolved]
  - Somnambulism [Recovered/Resolved with Sequelae]
  - Aphonia [Recovered/Resolved]
  - Sleep talking [Recovered/Resolved with Sequelae]
  - Anxiety [Unknown]
  - Withdrawal syndrome [Unknown]
  - Urine odour abnormal [Unknown]
  - Ageusia [Not Recovered/Not Resolved]
  - Aggression [Unknown]
  - Urinary incontinence [Unknown]
  - Depression [Unknown]
  - Crying [Unknown]
  - Vision blurred [Unknown]
  - Bursitis [Unknown]
  - Confusional state [Not Recovered/Not Resolved]

NARRATIVE: CASE EVENT DATE: 2006
